FAERS Safety Report 8793771 (Version 1)
Quarter: 2012Q4

REPORT INFORMATION
  Report Type: 
  Country: US (occurrence: US)
  Receive Date: 20120917
  Receipt Date: 20120917
  Transmission Date: 20130627
  Serious: No
  Sender: FDA-Public Use
  Company Number: US-009507513-1209USA006196

PATIENT

DRUGS (2)
  1. PEGINTRON [Suspect]
     Indication: HEPATITIS C
     Dosage: 150 Microgram, qw
     Route: 058
     Dates: start: 201112
  2. RIBAPAK [Suspect]
     Indication: HEPATITIS C

REACTIONS (1)
  - Malaise [Unknown]
